FAERS Safety Report 8583319-2 (Version None)
Quarter: 2012Q3

REPORT INFORMATION
  Report Type: 
  Country: None (occurrence: None)
  Receive Date: 20120809
  Receipt Date: 20120802
  Transmission Date: 20120928
  Serious: Yes (Other)
  Sender: FDA-Public Use
  Company Number: US-CELGENEUS-163-21880-12080409

PATIENT
  Sex: Female
  Weight: 105.33 kg

DRUGS (6)
  1. ASPIRIN [Concomitant]
     Dosage: 325 MILLIGRAM
     Route: 065
  2. REVLIMID [Suspect]
     Dosage: 10 MILLIGRAM
     Route: 048
     Dates: start: 20111101, end: 20120501
  3. REVLIMID [Suspect]
     Indication: MULTIPLE MYELOMA
     Dosage: 10 MILLIGRAM
     Route: 048
     Dates: start: 20100501, end: 20100701
  4. REVLIMID [Suspect]
     Dosage: 10 MILLIGRAM
     Route: 048
     Dates: start: 20110501, end: 20110901
  5. POTASSIUM CHLORIDE [Concomitant]
     Route: 065
  6. CALCIUM +D [Concomitant]
     Route: 065

REACTIONS (1)
  - MALIGNANT MELANOMA [None]
